FAERS Safety Report 21751097 (Version 2)
Quarter: 2023Q2

REPORT INFORMATION
  Report Type: Spontaneous
  Country: NL (occurrence: NL)
  Receive Date: 20221220
  Receipt Date: 20230630
  Transmission Date: 20230721
  Serious: Yes (Other)
  Sender: FDA-Public Use
  Company Number: NL-LRB-00854059

PATIENT
  Sex: Female
  Weight: 42.9 kg

DRUGS (2)
  1. OLANZAPINE [Suspect]
     Active Substance: OLANZAPINE
     Indication: Anorexia nervosa
     Dosage: 2.5 MILLIGRAM, DAILY, 1/DAY
     Route: 065
     Dates: start: 20221124, end: 20221128
  2. PROMETHAZINE [Concomitant]
     Active Substance: PROMETHAZINE HYDROCHLORIDE
     Indication: Product used for unknown indication
     Dosage: 25 MILLIGRAM, UNK
     Route: 065

REACTIONS (2)
  - Angioedema [Recovering/Resolving]
  - Rash pruritic [Recovering/Resolving]
